FAERS Safety Report 23614162 (Version 2)
Quarter: 2024Q1

REPORT INFORMATION
  Report Type: Spontaneous
  Country: US (occurrence: US)
  Receive Date: 20240310
  Receipt Date: 20240314
  Transmission Date: 20240410
  Serious: No
  Sender: FDA-Public Use
  Company Number: US-LEO Pharma-365182

PATIENT
  Age: 19 Year
  Sex: Female

DRUGS (3)
  1. ADBRY [Suspect]
     Active Substance: TRALOKINUMAB-LDRM
     Indication: Dermatitis atopic
     Dosage: ADMINISTER 4 (150 MG/ML) INJECTIONS SUBCUTANEOUSLY
     Route: 058
     Dates: start: 20231114
  2. ADBRY [Suspect]
     Active Substance: TRALOKINUMAB-LDRM
     Indication: Dermatitis atopic
     Dosage: ADMINISTER 4 (150 MG/ML) INJECTIONS SUBCUTANEOUSLY
     Route: 058
     Dates: start: 20231114
  3. DESVENLAFAXINE [Concomitant]
     Active Substance: DESVENLAFAXINE
     Indication: Product used for unknown indication
     Dosage: 100MG 1 TAB QD

REACTIONS (3)
  - Injection site pain [Recovered/Resolved]
  - Injection site indentation [Unknown]
  - Scab [Unknown]

NARRATIVE: CASE EVENT DATE: 20231114
